FAERS Safety Report 7333977-5 (Version None)
Quarter: 2011Q1

REPORT INFORMATION
  Report Type: 
  Country: None (occurrence: None)
  Receive Date: 20110301
  Receipt Date: 20110301
  Transmission Date: 20110831
  Serious: Yes (Hospitalization)
  Sender: FDA-Public Use
  Company Number: None

PATIENT
  Sex: Female
  Weight: 71.6 kg

DRUGS (5)
  1. CYCLOPHOSPHAMIDE [Concomitant]
  2. VANCOMYCIN [Suspect]
     Route: 042
     Dates: start: 20100630, end: 20100929
  3. DOXORUBICIN HCL [Concomitant]
  4. DOXORUBICIN HCL [Concomitant]
  5. CYCLOPHOSPHAMIDE [Concomitant]
     Dates: start: 20100630, end: 20100929

REACTIONS (4)
  - WHITE BLOOD CELL COUNT INCREASED [None]
  - ANAEMIA [None]
  - NEUTROPHIL COUNT DECREASED [None]
  - BODY TEMPERATURE INCREASED [None]
